FAERS Safety Report 4359932-5 (Version None)
Quarter: 2004Q2

REPORT INFORMATION
  Report Type: 
  Country: None (occurrence: None)
  Receive Date: 20040518
  Receipt Date: 20040507
  Transmission Date: 20050107
  Serious: Yes (Hospitalization, Other)
  Sender: FDA-Public Use
  Company Number: JP-MERCK-0405USA01093

PATIENT
  Age: 77 Year
  Sex: Female

DRUGS (4)
  1. PEPCID [Suspect]
     Route: 048
     Dates: start: 20020206
  2. PANCURONIUM BROMIDE [Concomitant]
     Route: 065
     Dates: start: 20020206
  3. PROTAMINE SULFATE [Concomitant]
     Route: 065
     Dates: start: 20020206
  4. VECURONIUM BROMIDE [Suspect]
     Route: 065
     Dates: start: 20020206

REACTIONS (3)
  - ANAESTHETIC COMPLICATION [None]
  - ANAPHYLACTOID SHOCK [None]
  - SKIN TEST POSITIVE [None]
